FAERS Safety Report 18844808 (Version 1)
Quarter: 2021Q1

REPORT INFORMATION
  Report Type: Spontaneous
  Country: JP (occurrence: JP)
  Receive Date: 20210204
  Receipt Date: 20210204
  Transmission Date: 20210419
  Serious: Yes (Other)
  Sender: FDA-Public Use
  Company Number: JP-GLAXOSMITHKLINE-JP2021021963

PATIENT
  Age: 84 Year
  Sex: Female

DRUGS (2)
  1. ANORO ELLIPTA [Suspect]
     Active Substance: UMECLIDINIUM BROMIDE\VILANTEROL TRIFENATATE
     Dosage: 1 DF, QD, IN THE MORNING
     Route: 055
     Dates: start: 202010, end: 202101
  2. TRELEGY ELLIPTA [Suspect]
     Active Substance: FLUTICASONE FUROATE\UMECLIDINIUM BROMIDE\VILANTEROL TRIFENATATE
     Dosage: 1 DF, QD, IN THE MORNING
     Route: 055
     Dates: start: 202101

REACTIONS (4)
  - Sputum abnormal [Unknown]
  - Delirium [Unknown]
  - Sputum retention [Unknown]
  - Sleep talking [Unknown]

NARRATIVE: CASE EVENT DATE: 202101
